FAERS Safety Report 6682576-7 (Version None)
Quarter: 2010Q2

REPORT INFORMATION
  Report Type: 
  Country: None (occurrence: None)
  Receive Date: 20100415
  Receipt Date: 20100408
  Transmission Date: 20101027
  Serious: Yes (Other)
  Sender: FDA-Public Use
  Company Number: TR-ASTRAZENECA-2010SE15520

PATIENT
  Age: 68 Year
  Sex: Female

DRUGS (3)
  1. PROPOFOL [Suspect]
     Indication: GENERAL ANAESTHESIA
     Dosage: 140 MG
     Route: 042
  2. FENTANYL [Suspect]
     Indication: GENERAL ANAESTHESIA
     Dosage: 50 UG
  3. VECURONIUM BROMIDE [Suspect]
     Indication: GENERAL ANAESTHESIA
     Dosage: 7 MG

REACTIONS (3)
  - ARTERIOSPASM CORONARY [None]
  - HYPOTENSION [None]
  - PRINZMETAL ANGINA [None]
